FAERS Safety Report 8606808 (Version 2)
Quarter: 2013Q3

REPORT INFORMATION
  Report Type: Spontaneous
  Country: US (occurrence: US)
  Receive Date: 20120611
  Receipt Date: 20130723
  Transmission Date: 20140515
  Serious: Yes (Hospitalization, Disabling)
  Sender: FDA-Public Use
  Company Number: US-ASTRAZENECA-2012SE36242

PATIENT
  Age: 56 Year
  Sex: Female

DRUGS (7)
  1. NEXIUM [Suspect]
     Indication: GASTROOESOPHAGEAL REFLUX DISEASE
     Route: 048
  2. PRILOSEC [Suspect]
     Indication: GASTROOESOPHAGEAL REFLUX DISEASE
     Route: 048
  3. PRILOSEC OTC [Suspect]
     Indication: GASTROOESOPHAGEAL REFLUX DISEASE
     Route: 048
  4. PREVACID OTC [Concomitant]
     Indication: GASTROOESOPHAGEAL REFLUX DISEASE
  5. ZANTAC (OTC) [Concomitant]
  6. TAGAMET(OTC) [Concomitant]
  7. PEPTO-BISMOL [Concomitant]

REACTIONS (11)
  - Spinal fracture [Unknown]
  - Neck deformity [Unknown]
  - Emotional disorder [Unknown]
  - Osteoporosis [Unknown]
  - Intervertebral disc injury [Unknown]
  - Road traffic accident [Unknown]
  - Post-traumatic neck syndrome [Unknown]
  - Diabetes mellitus [Unknown]
  - Cataract [Unknown]
  - Rheumatoid arthritis [Unknown]
  - Depression [Unknown]
